FAERS Safety Report 16336319 (Version 1)
Quarter: 2019Q2

REPORT INFORMATION
  Report Type: Spontaneous
  Country: CN (occurrence: CN)
  Receive Date: 20190521
  Receipt Date: 20190521
  Transmission Date: 20190711
  Serious: Yes (Other)
  Sender: FDA-Public Use
  Company Number: CN-ROCHE-2319168

PATIENT
  Age: 55 Year
  Sex: Female

DRUGS (13)
  1. XELODA [Suspect]
     Active Substance: CAPECITABINE
     Indication: BREAST CANCER
     Dosage: DAY1 TO DAY14
     Route: 048
     Dates: start: 20170719, end: 20171106
  2. GEMCITABINE [Concomitant]
     Active Substance: GEMCITABINE\GEMCITABINE HYDROCHLORIDE
     Indication: BREAST CANCER
     Dosage: DAY1, DAY8
     Route: 065
     Dates: start: 20180506, end: 20180828
  3. BEVACIZUMAB. [Concomitant]
     Active Substance: BEVACIZUMAB
     Indication: BREAST CANCER
     Route: 041
     Dates: start: 20190411
  4. GEMCITABINE [Concomitant]
     Active Substance: GEMCITABINE\GEMCITABINE HYDROCHLORIDE
     Indication: OFF LABEL USE
  5. HERCEPTIN [Suspect]
     Active Substance: TRASTUZUMAB
     Indication: BREAST CANCER
     Dosage: DAY1
     Route: 041
     Dates: start: 20171121, end: 20180328
  6. PYROTINIB [Concomitant]
     Active Substance: PYROTINIB
     Indication: OFF LABEL USE
     Route: 048
     Dates: start: 20190411
  7. HERCEPTIN [Suspect]
     Active Substance: TRASTUZUMAB
     Indication: OFF LABEL USE
     Dosage: DAY1
     Route: 041
     Dates: start: 20180506, end: 20180828
  8. XELODA [Suspect]
     Active Substance: CAPECITABINE
     Indication: OFF LABEL USE
     Dosage: DAY1 TO DAY14
     Route: 048
     Dates: start: 20171121, end: 20180328
  9. VINORELBINE [Concomitant]
     Active Substance: VINORELBINE\VINORELBINE TARTRATE
     Indication: OFF LABEL USE
  10. BEVACIZUMAB. [Concomitant]
     Active Substance: BEVACIZUMAB
     Indication: OFF LABEL USE
  11. VINORELBINE [Concomitant]
     Active Substance: VINORELBINE\VINORELBINE TARTRATE
     Indication: BREAST CANCER
     Dosage: DAY1,DAY5
     Route: 065
     Dates: start: 20170719, end: 20171106
  12. PYROTINIB [Concomitant]
     Active Substance: PYROTINIB
     Indication: BREAST CANCER
     Route: 048
     Dates: start: 20180915, end: 20190314
  13. HERCEPTIN [Suspect]
     Active Substance: TRASTUZUMAB
     Route: 041
     Dates: start: 20180915, end: 20190314

REACTIONS (7)
  - Off label use [Unknown]
  - Intentional product use issue [Unknown]
  - Fatigue [Unknown]
  - Drug intolerance [Unknown]
  - Pyrexia [Unknown]
  - Headache [Unknown]
  - Bone marrow failure [Unknown]

NARRATIVE: CASE EVENT DATE: 2018
